FAERS Safety Report 5055878-8 (Version None)
Quarter: 2006Q3

REPORT INFORMATION
  Report Type: 
  Country: None (occurrence: None)
  Receive Date: 20060717
  Receipt Date: 20060711
  Transmission Date: 20061208
  Serious: Yes (Other)
  Sender: FDA-Public Use
  Company Number: 230643K06USA

PATIENT
  Age: 37 Year
  Sex: Female

DRUGS (5)
  1. REBIF [Suspect]
     Indication: MULTIPLE SCLEROSIS
     Dates: start: 20040316, end: 20040701
  2. ZYRTEC [Concomitant]
  3. DOXEPIN HCL [Concomitant]
  4. ZOLOFT [Concomitant]
  5. AMANTADINE HCL [Concomitant]

REACTIONS (1)
  - PARALYSIS [None]
